FAERS Safety Report 15704551 (Version 3)
Quarter: 2019Q2

REPORT INFORMATION
  Report Type: Spontaneous
  Country: US (occurrence: US)
  Receive Date: 20181210
  Receipt Date: 20190403
  Transmission Date: 20190711
  Serious: Yes (Other)
  Sender: FDA-Public Use
  Company Number: US-PFIZER INC-2018506582

PATIENT
  Age: 61 Year
  Sex: Female

DRUGS (1)
  1. ATORVASTATIN CALCIUM. [Suspect]
     Active Substance: ATORVASTATIN CALCIUM
     Indication: BLOOD CHOLESTEROL INCREASED
     Dosage: 20 MG, 1X/DAY
     Dates: start: 20120214

REACTIONS (5)
  - Mouth haemorrhage [Recovered/Resolved]
  - Pharyngeal haemorrhage [Unknown]
  - Mouth swelling [Recovered/Resolved]
  - Pharyngeal swelling [Unknown]
  - Gingival swelling [Unknown]
